FAERS Safety Report 7841395-6 (Version None)
Quarter: 2011Q4

REPORT INFORMATION
  Report Type: 
  Country: None (occurrence: None)
  Receive Date: 20111025
  Receipt Date: 20111013
  Transmission Date: 20120403
  Serious: Yes (Hospitalization, Other)
  Sender: FDA-Public Use
  Company Number: SE-JNJFOC-20111006236

PATIENT
  Sex: Female

DRUGS (15)
  1. DIAZEPAM [Concomitant]
     Route: 065
  2. IMURAN [Concomitant]
     Indication: TAKAYASU'S ARTERITIS
     Route: 065
  3. PREDNISOLONE [Concomitant]
     Indication: TAKAYASU'S ARTERITIS
     Route: 065
  4. PANOCOD [Concomitant]
     Dosage: DOSE:500MG/30MG
     Route: 065
  5. BUDESONIDE EASYHALER [Concomitant]
     Dosage: 400UG/DOSE
     Route: 065
  6. ASPIRIN [Concomitant]
     Route: 065
  7. REMICADE [Suspect]
     Indication: POLYARTERITIS NODOSA
     Route: 042
     Dates: start: 20110801
  8. LANSOPRAZOLE [Concomitant]
     Route: 065
  9. NITROMEX [Concomitant]
     Route: 060
  10. IMDUR [Concomitant]
     Route: 065
  11. LIPITOR [Concomitant]
     Route: 065
  12. BRICANYL [Concomitant]
     Route: 065
  13. PAMOL [Concomitant]
     Route: 065
  14. BISOPROLOL [Concomitant]
     Route: 065
  15. FLUNITRAZEPAM [Concomitant]
     Route: 065

REACTIONS (4)
  - CEREBRAL INFARCTION [None]
  - DYSARTHRIA [None]
  - VIITH NERVE PARALYSIS [None]
  - HEADACHE [None]
